FAERS Safety Report 9871996 (Version 2)
Quarter: 2014Q1

REPORT INFORMATION
  Report Type: Spontaneous
  Country: US (occurrence: US)
  Receive Date: 20140205
  Receipt Date: 20140205
  Transmission Date: 20141002
  Serious: Yes (Hospitalization)
  Sender: FDA-Public Use
  Company Number: US-B.I. PHARMACEUTICALS,INC./RIDGEFIELD-2014-BI-00464BP

PATIENT
  Sex: Female
  Weight: 66.7 kg

DRUGS (8)
  1. PRADAXA [Suspect]
     Indication: PRODUCT USED FOR UNKNOWN INDICATION
     Dosage: 150 MG
     Route: 048
     Dates: start: 20130801, end: 20130825
  2. Z-PAK [Concomitant]
  3. SULFAMETHOX [Concomitant]
  4. LEVOTHYROXINE [Concomitant]
     Dosage: 100 MCG
     Route: 048
  5. TEKTURNA [Concomitant]
     Dosage: 150 MG
     Route: 048
  6. LOPRESSOR [Concomitant]
     Dosage: 25 MG
     Route: 048
  7. CELEXA [Concomitant]
     Dosage: 10 MG
     Route: 048
  8. BACTRIM [Concomitant]
     Indication: OTITIS MEDIA

REACTIONS (2)
  - Gastrointestinal haemorrhage [Unknown]
  - Haemorrhagic anaemia [Unknown]
